FAERS Safety Report 7450444-9 (Version None)
Quarter: 2011Q2

REPORT INFORMATION
  Report Type: 
  Country: None (occurrence: None)
  Receive Date: 20110502
  Receipt Date: 20110422
  Transmission Date: 20111010
  Serious: Yes (Hospitalization)
  Sender: FDA-Public Use
  Company Number: IT-BRISTOL-MYERS SQUIBB COMPANY-15701923

PATIENT
  Age: 86 Year
  Sex: Female

DRUGS (6)
  1. CONGESCOR [Concomitant]
     Indication: ATRIAL FIBRILLATION
     Dosage: CONGESCOR 7.5 MG ORAL TABS
     Route: 048
     Dates: start: 20090101, end: 20110314
  2. EUTIROX [Concomitant]
     Indication: HYPOTHYROIDISM
     Dosage: EUTIROX 50 MICRO G TABS
     Dates: start: 20090101, end: 20110314
  3. ENAPREN [Concomitant]
     Indication: HYPERTENSION
     Dosage: ENAPREN 20MG ORAL TABS
     Route: 048
     Dates: start: 20090101, end: 20110314
  4. PREDNISONE [Concomitant]
     Indication: POLYMYALGIA RHEUMATICA
     Route: 048
     Dates: start: 20090101, end: 20110314
  5. NORVASC [Concomitant]
     Indication: HYPERTENSION
     Dosage: NORVASC 10 MG ORAL TABS
     Dates: start: 20090101, end: 20110314
  6. COUMADIN [Suspect]
     Indication: ATRIAL FIBRILLATION
     Route: 048
     Dates: start: 20110301, end: 20110314

REACTIONS (3)
  - OVERDOSE [None]
  - DRUG ADMINISTRATION ERROR [None]
  - PROTHROMBIN TIME PROLONGED [None]
